FAERS Safety Report 9524825 (Version 6)
Quarter: 2014Q2

REPORT INFORMATION
  Report Type: Spontaneous
  Country: JP (occurrence: JP)
  Receive Date: 20130916
  Receipt Date: 20140609
  Transmission Date: 20141212
  Serious: Yes (Life-Threatening, Hospitalization)
  Sender: FDA-Public Use
  Company Number: JP-PFIZER INC-2013254671

PATIENT
  Age: 75 Year
  Sex: Female
  Weight: 48.1 kg

DRUGS (18)
  1. ZYVOX [Suspect]
     Indication: OSTEOMYELITIS
     Dosage: 600 MG, 1X/DAY
     Route: 041
     Dates: start: 20130827, end: 20130827
  2. ZYVOX [Suspect]
     Dosage: 600 MG, 2X/DAY
     Route: 041
     Dates: start: 20130828, end: 20130830
  3. REMINARON [Suspect]
     Indication: PANCREATITIS ACUTE
     Dosage: 200 MG, 2X/DAY
     Route: 041
     Dates: start: 20130830, end: 20130830
  4. REMINARON [Suspect]
     Dosage: 200 MG, 1X/DAY
     Route: 041
     Dates: start: 20130831, end: 20130831
  5. REMINARON [Suspect]
     Dosage: 100 MG, 2X/DAY
     Route: 041
     Dates: start: 20130901, end: 20130901
  6. CUBICIN [Concomitant]
     Indication: OSTEOMYELITIS
     Dosage: 350 MG, 1X/DAY
     Route: 041
     Dates: start: 20130822, end: 20130822
  7. CUBICIN [Concomitant]
     Dosage: 290 MG, 1X/DAY
     Route: 041
     Dates: start: 20130823, end: 20130826
  8. CEFOTAX [Concomitant]
     Indication: WOUND INFECTION
     Dosage: 1 G, 1X/DAY
     Route: 041
     Dates: start: 20130822, end: 20130822
  9. CEFOTAX [Concomitant]
     Dosage: 1 G, 3X/DAY
     Route: 041
     Dates: start: 20130823, end: 20130825
  10. CEFOTAX [Concomitant]
     Dosage: 1 G, 1X/DAY
     Route: 041
     Dates: start: 20130826, end: 20130826
  11. RIFADIN [Concomitant]
     Indication: WOUND INFECTION
     Dosage: 450 MG, 1X/DAY
     Route: 048
     Dates: start: 20130823, end: 20130830
  12. SEFMAZON [Concomitant]
     Indication: INFECTION PROPHYLAXIS
     Dosage: 1 G, 2X/DAY
     Route: 042
     Dates: start: 20130829, end: 20130830
  13. LASIX [Concomitant]
     Dosage: 20 MG, 1X/DAY
     Route: 048
  14. ALDACTONE [Concomitant]
     Dosage: 25 MG, 1X/DAY
     Route: 048
  15. TAKEPRON [Concomitant]
     Dosage: 15 MG, 1X/DAY
     Route: 048
  16. SUNRYTHM [Concomitant]
     Dosage: 50 MG, 2X/DAY
     Route: 048
  17. SELOKEN [Concomitant]
     Dosage: 10 MG, 2X/DAY
     Route: 048
  18. FRANDOL [Concomitant]
     Dosage: 40 MG, 1X/DAY
     Route: 062

REACTIONS (1)
  - Hyponatraemia [Recovered/Resolved]
